FAERS Safety Report 6682562-7 (Version None)
Quarter: 2010Q2

REPORT INFORMATION
  Report Type: 
  Country: None (occurrence: None)
  Receive Date: 20100415
  Receipt Date: 20100315
  Transmission Date: 20101027
  Serious: Yes (Hospitalization, Other)
  Sender: FDA-Public Use
  Company Number: PHHY2010NZ19746

PATIENT
  Sex: Female

DRUGS (3)
  1. GLEEVEC [Suspect]
     Indication: GASTROINTESTINAL STROMAL TUMOUR
     Dosage: 400 MG DAILY
     Dates: start: 20070301, end: 20090901
  2. GLEEVEC [Suspect]
     Dosage: 600 MG DAILY
     Dates: start: 20090901, end: 20091201
  3. GLEEVEC [Suspect]
     Dosage: 800 MG DAILY
     Dates: start: 20091201, end: 20100301

REACTIONS (19)
  - ABDOMINAL PAIN [None]
  - ABDOMINAL PAIN LOWER [None]
  - ADNEXA UTERI MASS [None]
  - ASCITES [None]
  - DOUGLAS' POUCH MASS [None]
  - FATIGUE [None]
  - GASTROINTESTINAL STROMAL TUMOUR [None]
  - HAEMATOCRIT DECREASED [None]
  - HAEMOGLOBIN DECREASED [None]
  - HYPERTENSION [None]
  - INFARCTION [None]
  - MALIGNANT NEOPLASM PROGRESSION [None]
  - OVARIAN CYST [None]
  - PELVIC NEOPLASM [None]
  - PERIORBITAL OEDEMA [None]
  - PERITONEAL DISORDER [None]
  - PLEURAL EFFUSION [None]
  - RED BLOOD CELL COUNT DECREASED [None]
  - TUMOUR HAEMORRHAGE [None]
